FAERS Safety Report 4435133-7 (Version None)
Quarter: 2004Q3

REPORT INFORMATION
  Report Type: 
  Country: None (occurrence: None)
  Receive Date: 20040826
  Receipt Date: 20040811
  Transmission Date: 20050211
  Serious: Yes (Hospitalization)
  Sender: FDA-Public Use
  Company Number: F01200402436

PATIENT
  Age: 66 Year
  Sex: Male

DRUGS (3)
  1. OXALIPLATIN - SOLUTION - 55MG [Suspect]
     Indication: PANCREATIC CARCINOMA
     Dosage: INTRAVENOUS NOS
     Route: 042
     Dates: start: 20040703, end: 20040703
  2. FLUOROURACIL - SOLUTION - 400 MG [Suspect]
     Dosage: 250 MG/M2 DAY, 7 DAYS A WEEK FOR 5 WEEK INTRAVENOUS NOS
     Route: 042
     Dates: end: 20040703
  3. PREVISCAN (FLUINDIONE) [Concomitant]

REACTIONS (8)
  - DEHYDRATION [None]
  - DIARRHOEA [None]
  - DISORIENTATION [None]
  - GENERAL PHYSICAL HEALTH DETERIORATION [None]
  - HYPONATRAEMIA [None]
  - INTERNATIONAL NORMALISED RATIO INCREASED [None]
  - MALNUTRITION [None]
  - OVERDOSE [None]
